FAERS Safety Report 6392437-9 (Version None)
Quarter: 2009Q4

REPORT INFORMATION
  Report Type: 
  Country: None (occurrence: None)
  Receive Date: 20091007
  Receipt Date: 20090925
  Transmission Date: 20100525
  Serious: Yes (Other)
  Sender: FDA-Public Use
  Company Number: US-JNJFOC-20091000374

PATIENT
  Age: 6 Year
  Sex: Female
  Weight: 32.66 kg

DRUGS (2)
  1. CHILDREN'S TYLENOL LIQUID VERY BERRY STRAWBERRY [Suspect]
     Route: 048
  2. CHILDREN'S TYLENOL LIQUID VERY BERRY STRAWBERRY [Suspect]
     Indication: MALAISE
     Route: 048

REACTIONS (2)
  - TRANSMISSION OF AN INFECTIOUS AGENT VIA A MEDICINAL PRODUCT [None]
  - URTICARIA [None]
